FAERS Safety Report 25089021 (Version 1)
Quarter: 2025Q1

REPORT INFORMATION
  Report Type: Spontaneous
  Country: US (occurrence: US)
  Receive Date: 20250318
  Receipt Date: 20250318
  Transmission Date: 20250408
  Serious: Yes (Other)
  Sender: PFIZER
  Company Number: US-BRISTOL-MYERS SQUIBB COMPANY-2025-037099

PATIENT
  Age: 74 Year
  Sex: Male

DRUGS (2)
  1. ELIQUIS [Suspect]
     Active Substance: APIXABAN
  2. VYNDAQEL [Suspect]
     Active Substance: TAFAMIDIS MEGLUMINE
     Dosage: 80 MG, DAILY (TAKE FOR 20 MG CAPSULES)
     Route: 048

REACTIONS (5)
  - Polyarthritis [Unknown]
  - Prostatic disorder [Unknown]
  - Dyspnoea [Unknown]
  - Joint swelling [Unknown]
  - Gait inability [Unknown]
